FAERS Safety Report 4895110-9 (Version None)
Quarter: 2006Q1

REPORT INFORMATION
  Report Type: 
  Country: None (occurrence: None)
  Receive Date: 20060124
  Receipt Date: 20060117
  Transmission Date: 20060701
  Serious: Yes (Hospitalization)
  Sender: FDA-Public Use
  Company Number: NALX20050001

PATIENT
  Age: 25 Year
  Sex: Male

DRUGS (4)
  1. NALOXONE [Suspect]
     Indication: OVERDOSE
     Dosage: 0.8 MG ONCE IM
     Route: 030
     Dates: start: 19981215, end: 19981215
  2. NALOXONE [Suspect]
     Indication: OVERDOSE
     Dosage: 1.0 MG ONCE IV
     Route: 042
     Dates: start: 19981215, end: 19981215
  3. HEROIN [Suspect]
     Dates: start: 19981215
  4. ROHYPNOL (FLUNITRAZEPAM) HOFFMAN-LAROCHE, INC. [Suspect]
     Dates: start: 19981215

REACTIONS (11)
  - CONFUSIONAL STATE [None]
  - DRUG ABUSER [None]
  - DRUG INTERACTION [None]
  - HEADACHE [None]
  - LOSS OF CONSCIOUSNESS [None]
  - MIOSIS [None]
  - OVERDOSE [None]
  - RESPIRATORY FAILURE [None]
  - RESTLESSNESS [None]
  - THERAPY NON-RESPONDER [None]
  - VISUAL DISTURBANCE [None]
